FAERS Safety Report 4998030-4 (Version None)
Quarter: 2006Q2

REPORT INFORMATION
  Report Type: 
  Country: None (occurrence: None)
  Receive Date: 20060508
  Receipt Date: 20060426
  Transmission Date: 20061013
  Serious: Yes (Hospitalization, Other)
  Sender: FDA-Public Use
  Company Number: HQWYE015227APR06

PATIENT
  Age: 69 Year
  Sex: Female
  Weight: 74.9 kg

DRUGS (17)
  1. RAPAMUNE [Suspect]
     Indication: PROPHYLAXIS AGAINST TRANSPLANT REJECTION
     Dosage: 3 MG 1X PER 1 DAY, ORAL
     Route: 048
     Dates: start: 20060303
  2. MYCOPHENOLIC ACID [Suspect]
     Indication: PROPHYLAXIS AGAINST TRANSPLANT REJECTION
     Dosage: 720 MG 2X PER 1 DAY, ORAL
     Route: 048
     Dates: start: 20060304
  3. PREDNISONE TAB [Concomitant]
  4. AMLODIPINE BESYLATE [Concomitant]
  5. METOPROLOL SUCCINATE [Concomitant]
  6. MINOXIDIL [Concomitant]
  7. BACTRIM DS [Concomitant]
  8. NYSTATIN [Concomitant]
  9. VALGANCICLOVIR HCL [Concomitant]
  10. HUMALOG [Concomitant]
  11. INSULIN NOVOLIN 70/30 (INSULIN HUMAN SEMISYNTHETIC/INSULIN ISOPHANE HU [Concomitant]
  12. COLACE (DOCUSATE SODIUM) [Concomitant]
  13. ISOSORBIDE MONONITRATE [Concomitant]
  14. ASPIRIN [Concomitant]
  15. CILOSTAZOL [Concomitant]
  16. ARANESP [Concomitant]
  17. DARVOCET-N 50 [Concomitant]

REACTIONS (9)
  - CELLULITIS [None]
  - COUGH [None]
  - DRY GANGRENE [None]
  - ENTEROCOCCAL INFECTION [None]
  - INCISION SITE INFECTION [None]
  - POSTOPERATIVE WOUND INFECTION [None]
  - STAPHYLOCOCCAL INFECTION [None]
  - WOUND DEHISCENCE [None]
  - WOUND INFECTION BACTERIAL [None]
